FAERS Safety Report 6941588-6 (Version None)
Quarter: 2010Q3

REPORT INFORMATION
  Report Type: 
  Country: None (occurrence: None)
  Receive Date: 20100825
  Receipt Date: 20100813
  Transmission Date: 20110219
  Serious: Yes (Death, Other)
  Sender: FDA-Public Use
  Company Number: PHEH2006US15190

PATIENT
  Sex: Female
  Weight: 98.413 kg

DRUGS (28)
  1. ZOMETA [Suspect]
     Dosage: UNK, UNK
  2. CHEMOTHERAPEUTICS NOS [Concomitant]
     Indication: MULTIPLE MYELOMA
     Dosage: UNK, UNK
  3. EFFEXOR [Concomitant]
     Indication: DEPRESSION
     Dosage: 150 MG, QD
  4. NEURONTIN [Concomitant]
     Dosage: UNK, UNK
  5. OXYCONTIN [Concomitant]
     Indication: PAIN
     Dosage: UNK, UNK
  6. FOLIC ACID [Concomitant]
     Dosage: 1 MG, QD
  7. GABAPENTIN [Concomitant]
     Indication: PAIN
     Dosage: 300 MG, TID
  8. ZANTAC [Concomitant]
     Indication: GASTROOESOPHAGEAL REFLUX DISEASE
     Dosage: 150 MG, TID
  9. ACYCLOVIR SODIUM [Concomitant]
     Dosage: 200 MG, BID
  10. MAGNESIUM [Concomitant]
     Dosage: 500 MG, BID
  11. PYRIDOXINE HCL [Concomitant]
     Dosage: 400 MG, QD
  12. VITAMIN E [Concomitant]
     Dosage: 1000 IU, QD
  13. THALIDOMIDE [Concomitant]
     Dosage: 200 MG, QHS
  14. MORPHINE SULFATE [Concomitant]
     Dosage: 60 MG, BID
  15. DOLASETRON [Concomitant]
  16. DEXAMETHASONE [Concomitant]
  17. COMPAZINE [Concomitant]
  18. BENADRYL [Concomitant]
  19. AZITHROMYCIN [Concomitant]
  20. PREDNISONE [Concomitant]
  21. CYTOXAN [Concomitant]
  22. PREMARIN [Concomitant]
  23. LASIX [Concomitant]
  24. PRILOSEC [Concomitant]
  25. LORAZEPAM [Concomitant]
  26. WELLBUTRIN [Concomitant]
  27. SALSALATE [Concomitant]
  28. ADVAIR DISKUS 100/50 [Concomitant]

REACTIONS (38)
  - ABDOMINAL DISCOMFORT [None]
  - ANAEMIA [None]
  - ANXIETY [None]
  - ARTHRALGIA [None]
  - BACK PAIN [None]
  - CHRONIC OBSTRUCTIVE PULMONARY DISEASE [None]
  - CONSTIPATION [None]
  - COUGH [None]
  - DEATH [None]
  - DECREASED INTEREST [None]
  - DENTURE WEARER [None]
  - DYSPNOEA [None]
  - FATIGUE [None]
  - GENERAL PHYSICAL HEALTH DETERIORATION [None]
  - GINGIVAL INFECTION [None]
  - HALLUCINATION [None]
  - HEADACHE [None]
  - IMPAIRED HEALING [None]
  - MALAISE [None]
  - MULTIPLE MYELOMA [None]
  - MUSCLE TIGHTNESS [None]
  - NASOPHARYNGITIS [None]
  - NEUROPATHY PERIPHERAL [None]
  - ORAL INFECTION [None]
  - ORAL PAIN [None]
  - OSTEOMYELITIS [None]
  - OSTEONECROSIS OF JAW [None]
  - PAIN [None]
  - PAIN IN EXTREMITY [None]
  - PAIN IN JAW [None]
  - PNEUMONIA [None]
  - SLEEP DISORDER [None]
  - SPINAL COMPRESSION FRACTURE [None]
  - STOMATITIS [None]
  - STRESS [None]
  - TOOTH EXTRACTION [None]
  - WEIGHT INCREASED [None]
  - WHEEZING [None]
